FAERS Safety Report 9671818 (Version 2)
Quarter: 2015Q2

REPORT INFORMATION
  Report Type: Spontaneous
  Country: US (occurrence: US)
  Receive Date: 20131106
  Receipt Date: 20150515
  Transmission Date: 20150821
  Serious: Yes (Life-Threatening, Hospitalization, Other)
  Sender: FDA-Public Use
  Company Number: PHHY2013US122539

PATIENT
  Age: 26 Year
  Sex: Male

DRUGS (1)
  1. METHADONE [Suspect]
     Active Substance: METHADONE HYDROCHLORIDE
     Indication: PRODUCT USED FOR UNKNOWN INDICATION
     Route: 065

REACTIONS (6)
  - Mental status changes [Unknown]
  - Brain stem haemorrhage [Unknown]
  - Posterior reversible encephalopathy syndrome [Unknown]
  - Seizure [Unknown]
  - Brain herniation [Unknown]
  - Overdose [Unknown]
